FAERS Safety Report 6821793-X (Version None)
Quarter: 2010Q3

REPORT INFORMATION
  Report Type: 
  Country: None (occurrence: None)
  Receive Date: 20100708
  Receipt Date: 20100115
  Transmission Date: 20110219
  Serious: Yes (Other)
  Sender: FDA-Public Use
  Company Number: US-ASTRAZENECA-2007UW11136

PATIENT
  Age: 11431 Day
  Sex: Male
  Weight: 141.5 kg

DRUGS (27)
  1. SEROQUEL [Suspect]
     Indication: POST-TRAUMATIC STRESS DISORDER
     Route: 048
     Dates: start: 20020727
  2. SEROQUEL [Suspect]
     Indication: BIPOLAR DISORDER
     Route: 048
     Dates: start: 20020727
  3. SEROQUEL [Suspect]
     Indication: SCHIZOPHRENIA
     Route: 048
     Dates: start: 20020727
  4. SEROQUEL [Suspect]
     Route: 048
     Dates: end: 20060101
  5. SEROQUEL [Suspect]
     Route: 048
     Dates: end: 20060101
  6. SEROQUEL [Suspect]
     Route: 048
     Dates: end: 20060101
  7. SEROQUEL [Suspect]
     Route: 048
     Dates: start: 20060701, end: 20080401
  8. SEROQUEL [Suspect]
     Route: 048
     Dates: start: 20060701, end: 20080401
  9. SEROQUEL [Suspect]
     Route: 048
     Dates: start: 20060701, end: 20080401
  10. RISPERDAL [Concomitant]
  11. THORAZINE [Concomitant]
  12. HALDOL [Concomitant]
  13. ALTACE [Concomitant]
     Route: 048
     Dates: start: 20050105
  14. COLCHICINE [Concomitant]
     Dates: start: 20050105
  15. THEOPHYLLINE [Concomitant]
     Route: 048
     Dates: start: 20050105
  16. LEXAPRO [Concomitant]
     Dates: start: 20050105
  17. COREG [Concomitant]
     Route: 048
     Dates: start: 20050105
  18. ALLOPURINOL [Concomitant]
     Dates: start: 20050105
  19. INSULIN [Concomitant]
     Dosage: 45 UNITS IN THE MORNING AND 40 UNITS BEFORE DINNER
     Dates: start: 20050105
  20. TRAZODONE HYDROCHLORIDE [Concomitant]
     Indication: INSOMNIA
     Dates: start: 20020727
  21. WELLBUTRIN SR [Concomitant]
     Dates: start: 20020727
  22. DEPAKOTE ER [Concomitant]
     Dates: start: 20030318
  23. TOPROL-XL [Concomitant]
     Dates: start: 20030318
  24. TOPAMAX [Concomitant]
     Dates: start: 20030318
  25. ZESTRIL [Concomitant]
     Dates: start: 20020727
  26. ABILIFY [Concomitant]
  27. CELEXA [Concomitant]
     Dates: start: 20090510, end: 20090926

REACTIONS (4)
  - BACK PAIN [None]
  - DIABETES MELLITUS [None]
  - DIABETIC NEUROPATHY [None]
  - TYPE 2 DIABETES MELLITUS [None]
